FAERS Safety Report 21182666 (Version 1)
Quarter: 2022Q3

REPORT INFORMATION
  Report Type: Spontaneous
  Country: US (occurrence: US)
  Receive Date: 20220808
  Receipt Date: 20220808
  Transmission Date: 20221026
  Serious: No
  Sender: FDA-Public Use
  Company Number: US-LUPIN PHARMACEUTICALS INC.-2022-10069

PATIENT
  Age: 61 Year
  Sex: Female

DRUGS (7)
  1. VORICONAZOLE [Suspect]
     Active Substance: VORICONAZOLE
     Indication: Cutaneous T-cell lymphoma stage IV
     Dosage: UNK
     Route: 065
  2. ROMIDEPSIN [Concomitant]
     Active Substance: ROMIDEPSIN
     Indication: Cutaneous T-cell lymphoma stage IV
     Dosage: UNK
     Route: 065
  3. GEMCITABINE [Concomitant]
     Active Substance: GEMCITABINE
     Indication: Cutaneous T-cell lymphoma stage IV
     Dosage: UNK
     Route: 065
  4. PRALATREXATE [Concomitant]
     Active Substance: PRALATREXATE
     Indication: Cutaneous T-cell lymphoma stage IV
     Dosage: UNK
     Route: 065
  5. TACROLIMUS [Concomitant]
     Active Substance: TACROLIMUS
     Indication: Immunosuppressant drug therapy
     Dosage: UNK FROM DAY 3 THAT WAS TAPERED OVER A SEVEN-MONTH PERIOD
     Route: 065
  6. METHOTREXATE [Concomitant]
     Active Substance: METHOTREXATE
     Indication: Immunosuppressant drug therapy
     Dosage: UNK ON DAYS 1, 3, 6, AND 11
     Route: 065
  7. MARAVIROC [Concomitant]
     Active Substance: MARAVIROC
     Indication: Prophylaxis against graft versus host disease
     Dosage: UNK FROM DAY 2 TO DAY 30
     Route: 065

REACTIONS (1)
  - Photosensitivity reaction [Unknown]
